FAERS Safety Report 10096054 (Version 2)
Quarter: 2014Q2

REPORT INFORMATION
  Report Type: Spontaneous
  Country: US (occurrence: US)
  Receive Date: 20140422
  Receipt Date: 20140509
  Transmission Date: 20141212
  Serious: Yes (Hospitalization)
  Sender: FDA-Public Use
  Company Number: US-BAYER-2014-056814

PATIENT
  Age: 40 Year
  Sex: Female
  Weight: 70.75 kg

DRUGS (4)
  1. YAZ [Suspect]
     Dosage: UNK
  2. ZOLOFT [Concomitant]
  3. TOPAMAX [Concomitant]
  4. SYNTHROID [Concomitant]

REACTIONS (1)
  - Ischaemic stroke [Recovering/Resolving]
